FAERS Safety Report 6914065-6 (Version None)
Quarter: 2010Q3

REPORT INFORMATION
  Report Type: 
  Country: None (occurrence: None)
  Receive Date: 20100809
  Receipt Date: 20100804
  Transmission Date: 20110219
  Serious: Yes (Death)
  Sender: FDA-Public Use
  Company Number: PHFR2010GB01346

PATIENT
  Sex: Female

DRUGS (9)
  1. CLOZARIL [Suspect]
     Indication: SCHIZOPHRENIA
     Dosage: UNK
     Route: 048
     Dates: start: 20100707
  2. LEVOTHYROXINE [Concomitant]
  3. LANSOPRAZOLE [Concomitant]
     Dosage: 30 MG, UNK
  4. FERROUS SULFATE TAB [Concomitant]
     Dosage: 400 MG, UNK
  5. METFORMIN HCL [Concomitant]
     Dosage: 1500 MG, QD
  6. CODEINE PHOSPHATE [Concomitant]
     Dosage: UNK
  7. NICOTINE [Concomitant]
     Dosage: UNK
  8. PARACETAMOL [Concomitant]
     Dosage: UNK
  9. PROMETHAZINE [Concomitant]
     Dosage: UNK

REACTIONS (1)
  - COMPLETED SUICIDE [None]
